FAERS Safety Report 13470688 (Version 1)
Quarter: 2017Q2

REPORT INFORMATION
  Report Type: Spontaneous
  Country: GB (occurrence: GB)
  Receive Date: 20170424
  Receipt Date: 20170424
  Transmission Date: 20170830
  Serious: Yes (Death)
  Sender: FDA-Public Use
  Company Number: GB-BEH-2017079748

PATIENT
  Age: 2 Year
  Sex: Male

DRUGS (1)
  1. HUMAN FACTOR XIII (INN) [Suspect]
     Active Substance: FACTOR XIII CONCENTRATE (HUMAN)
     Indication: FACTOR XIII DEFICIENCY
     Route: 065

REACTIONS (3)
  - Drug ineffective [Fatal]
  - Condition aggravated [None]
  - Haemorrhage [None]
